FAERS Safety Report 6772216-0 (Version None)
Quarter: 2010Q2

REPORT INFORMATION
  Report Type: 
  Country: None (occurrence: None)
  Receive Date: 20100611
  Receipt Date: 20100528
  Transmission Date: 20101027
  Serious: Yes (Hospitalization)
  Sender: FDA-Public Use
  Company Number: 1ND1-FR-2010-0052

PATIENT
  Age: 21 Month
  Sex: Male

DRUGS (7)
  1. INDOMETHACIN [Suspect]
     Indication: CYSTINOSIS
     Dosage: 3 ML (1.5 ML, 2 IN 1 D) ORAL
     Route: 048
     Dates: start: 20100317, end: 20100320
  2. CYSTAGON [Concomitant]
  3. SODIUM BICARBONATE (SODIUM BICARBONATE) (SODIUM BICARBONATE) [Concomitant]
  4. CALCIDIA (CALCIUM CARBONATE) (CALCIUM CARBONATE) [Concomitant]
  5. PHOSPHONEUROS (MAGNESIUM GLYCEROPHOSPHATE, SODIUM PHOSPHATE, DIBASIC, [Concomitant]
  6. LEVOTHYROXINE SODIUM [Concomitant]
  7. UVESTEROL (ERGOCALCIFEROL, ASCORBIC ACID, TOCOHEROL, RETINOL) ERGOCALC [Concomitant]

REACTIONS (3)
  - DRUG ERUPTION [None]
  - OFF LABEL USE [None]
  - RASH [None]
